FAERS Safety Report 15979444 (Version 1)
Quarter: 2019Q1

REPORT INFORMATION
  Report Type: Spontaneous
  Country: US (occurrence: US)
  Receive Date: 20190217
  Receipt Date: 20190217
  Transmission Date: 20190418
  Serious: Yes (Other)
  Sender: FDA-Public Use
  Company Number: None

PATIENT
  Age: 59 Year
  Sex: Female
  Weight: 90 kg

DRUGS (1)
  1. FLUOROURACIL 5 TOPICAL CREAM [Suspect]
     Active Substance: FLUOROURACIL
     Indication: PRECANCEROUS SKIN LESION
     Dosage: ?          QUANTITY:40 G;?
     Route: 061
     Dates: start: 20190120, end: 20190130

REACTIONS (2)
  - Arrhythmia [None]
  - Initial insomnia [None]

NARRATIVE: CASE EVENT DATE: 20190130
